FAERS Safety Report 4288178-4 (Version None)
Quarter: 2004Q1

REPORT INFORMATION
  Report Type: 
  Country: None (occurrence: None)
  Receive Date: 20040205
  Receipt Date: 20040129
  Transmission Date: 20041129
  Serious: Yes (Death, Hospitalization, Disabling, Other)
  Sender: FDA-Public Use
  Company Number: 2003-11-1161

PATIENT
  Age: 28 Year
  Sex: Male
  Weight: 68 kg

DRUGS (12)
  1. INTRON A [Suspect]
     Indication: HEPATITIS C
     Dosage: 6 MU QD-TIW* SUBCUTANEOUS
     Route: 058
     Dates: start: 20030908, end: 20031017
  2. REBETOL [Suspect]
     Indication: HEPATITIS C
     Dosage: 400 MG QD ORAL
     Route: 048
     Dates: start: 20030908, end: 20031020
  3. DIDANOSINE [Suspect]
     Indication: HIV INFECTION
     Dosage: 250 MG QD ORAL
     Route: 048
     Dates: start: 20020731, end: 20031023
  4. LOPINAVIR/RITONAVIR [Suspect]
     Indication: HIV INFECTION
     Dosage: 6 C QD ORAL
     Route: 048
     Dates: start: 20030129, end: 20031023
  5. STAVUDINE (DIDEHYDROTHYMIDINE) [Suspect]
     Indication: HIV INFECTION
     Dosage: 80 MG QD ORAL
     Route: 048
     Dates: start: 20020731, end: 20031023
  6. FAMOTIDINE [Concomitant]
  7. IBUPROFEN [Concomitant]
  8. HERBAL MEDICATION NOS [Concomitant]
  9. COAGULATION FACTORS (NOS) [Concomitant]
  10. UNSPECIFIED THERAPEUTIC AGENT PRN [Concomitant]
  11. URSODEOXYVHOLIC ACID [Concomitant]
  12. BIFIDOBACTERIUM BIFIDUM [Concomitant]

REACTIONS (19)
  - ANOREXIA [None]
  - ASCITES [None]
  - HAEMATEMESIS [None]
  - HEPATIC CIRRHOSIS [None]
  - HEPATIC FAILURE [None]
  - HEPATIC NECROSIS [None]
  - HEPATIC STEATOSIS [None]
  - LACTIC ACIDOSIS [None]
  - MULTI-ORGAN FAILURE [None]
  - NAUSEA [None]
  - OESOPHAGEAL VARICES HAEMORRHAGE [None]
  - PANCREATITIS ACUTE [None]
  - PLATELET COUNT DECREASED [None]
  - PLEURAL EFFUSION [None]
  - PULMONARY CONGESTION [None]
  - RENAL FAILURE [None]
  - SMALL INTESTINAL HAEMORRHAGE [None]
  - SPLENOMEGALY [None]
  - WHITE BLOOD CELL COUNT DECREASED [None]
